FAERS Safety Report 23292183 (Version 1)
Quarter: 2023Q4

REPORT INFORMATION
  Report Type: Spontaneous
  Country: US (occurrence: US)
  Receive Date: 20231213
  Receipt Date: 20231213
  Transmission Date: 20240110
  Serious: Yes (Other)
  Sender: FDA-Public Use
  Company Number: US-ALKERMES INC.-ALK-2023-004621

PATIENT
  Age: 40 Year
  Sex: Female

DRUGS (10)
  1. VIVITROL [Suspect]
     Active Substance: NALTREXONE
     Indication: Alcohol use
     Dosage: 380 MILLIGRAM, Q28D
     Route: 030
     Dates: start: 20230413
  2. FLUOXETINE [Concomitant]
     Active Substance: FLUOXETINE HYDROCHLORIDE
     Indication: Product used for unknown indication
     Dosage: 60 MILLIGRAM TAB
     Route: 065
  3. GLUCOSAMINE + CHONDORITIN [Concomitant]
     Indication: Product used for unknown indication
     Dosage: UNK CAP
     Route: 065
  4. MAGNESIUM OXIDE [Concomitant]
     Active Substance: MAGNESIUM OXIDE
     Indication: Product used for unknown indication
     Dosage: 400 MILLIGRAM
     Route: 065
  5. MELOXICAM [Concomitant]
     Active Substance: MELOXICAM
     Indication: Product used for unknown indication
     Dosage: 7.5 MILLIGRAM
     Route: 065
  6. NALTREXONE [Concomitant]
     Active Substance: NALTREXONE
     Indication: Product used for unknown indication
     Dosage: 50 MILLIGRAM TAB
     Route: 065
  7. PROPRANOLOL [Concomitant]
     Active Substance: PROPRANOLOL HYDROCHLORIDE
     Indication: Product used for unknown indication
     Dosage: 60 MILLIGRAM CAP ER
     Route: 065
  8. TIZANIDINE [Concomitant]
     Active Substance: TIZANIDINE
     Indication: Product used for unknown indication
     Dosage: 4 MILLIGRAM TAB
     Route: 065
  9. TRAZODONE [Concomitant]
     Active Substance: TRAZODONE HYDROCHLORIDE
     Indication: Product used for unknown indication
     Dosage: 100 MILLIGRAM TAB
     Route: 065
  10. VIIBRYD [Concomitant]
     Active Substance: VILAZODONE HYDROCHLORIDE
     Indication: Product used for unknown indication
     Dosage: 10 MILLIGRAM TAB
     Route: 065

REACTIONS (1)
  - Myocardial infarction [Unknown]

NARRATIVE: CASE EVENT DATE: 20231201
